FAERS Safety Report 5468610-0 (Version None)
Quarter: 2007Q3

REPORT INFORMATION
  Report Type: 
  Country: None (occurrence: None)
  Receive Date: 20070926
  Receipt Date: 20070919
  Transmission Date: 20080115
  Serious: Yes (Other)
  Sender: FDA-Public Use
  Company Number: GB-GILEAD-2007-0013224

PATIENT
  Sex: Female
  Weight: 58 kg

DRUGS (2)
  1. TRUVADA [Suspect]
     Indication: HIV INFECTION
     Route: 048
     Dates: start: 20061120, end: 20070319
  2. SUSTIVA [Suspect]
     Indication: HIV INFECTION
     Dates: start: 20051031

REACTIONS (1)
  - NEUTROPENIA [None]
